FAERS Safety Report 9711594 (Version 1)
Quarter: 2013Q4

REPORT INFORMATION
  Report Type: Spontaneous
  Country: US (occurrence: US)
  Receive Date: 20131126
  Receipt Date: 20131126
  Transmission Date: 20140711
  Serious: No
  Sender: FDA-Public Use
  Company Number: US-BRISTOL-MYERS SQUIBB COMPANY-18775650

PATIENT
  Age: 65 Year
  Sex: Female

DRUGS (3)
  1. BYDUREON 2MG SUSPENSION [Suspect]
     Indication: DIABETES MELLITUS
     Dates: start: 2013
  2. GLIPIZIDE [Concomitant]
  3. ACTOS [Concomitant]

REACTIONS (2)
  - Injection site nodule [Not Recovered/Not Resolved]
  - Injection site haemorrhage [Recovered/Resolved]
